FAERS Safety Report 5930638-1 (Version None)
Quarter: 2008Q4

REPORT INFORMATION
  Report Type: 
  Country: None (occurrence: None)
  Receive Date: 20081027
  Receipt Date: 20080925
  Transmission Date: 20090506
  Serious: No
  Sender: FDA-Public Use
  Company Number: US-BAYER-200826033NA

PATIENT
  Age: 38 Year
  Sex: Female

DRUGS (5)
  1. CAMPATH [Suspect]
     Indication: VASCULITIS
     Dates: start: 20080602, end: 20080616
  2. TYLENOL [Concomitant]
     Indication: PREMEDICATION
     Route: 048
  3. BENADRYL [Concomitant]
     Indication: PREMEDICATION
     Route: 048
  4. BACTRIM DS [Concomitant]
     Indication: INFECTION PROPHYLAXIS
  5. FAMVIR [Concomitant]
     Indication: INFECTION PROPHYLAXIS
     Dosage: TOTAL DAILY DOSE: 500 MG

REACTIONS (1)
  - PYREXIA [None]
